FAERS Safety Report 5360867-X (Version None)
Quarter: 2007Q2

REPORT INFORMATION
  Report Type: 
  Country: None (occurrence: None)
  Receive Date: 20070530
  Receipt Date: 20070326
  Transmission Date: 20071010
  Serious: No
  Sender: FDA-Public Use
  Company Number: 2007PV032412

PATIENT
  Age: 59 Year
  Sex: Male
  Weight: 94.3482 kg

DRUGS (5)
  1. BYETTA [Suspect]
     Indication: DIABETES MELLITUS NON-INSULIN-DEPENDENT
     Dosage: 10 MCG; 5 MCG : BID; SC
     Route: 058
     Dates: start: 20050101, end: 20050101
  2. BYETTA [Suspect]
     Indication: DIABETES MELLITUS NON-INSULIN-DEPENDENT
     Dosage: 10 MCG; 5 MCG : BID; SC
     Route: 058
     Dates: start: 20050101
  3. LANTUS [Concomitant]
  4. GLIMEPIRIDE [Concomitant]
  5. ACTOS/METFORMIN [Concomitant]

REACTIONS (3)
  - MUSCLE SPASMS [None]
  - SOMNOLENCE [None]
  - WEIGHT DECREASED [None]
